FAERS Safety Report 7740296-1 (Version None)
Quarter: 2011Q3

REPORT INFORMATION
  Report Type: 
  Country: None (occurrence: None)
  Receive Date: 20110909
  Receipt Date: 20110825
  Transmission Date: 20111222
  Serious: Yes (Other)
  Sender: FDA-Public Use
  Company Number: US-BAYER-2011-080195

PATIENT
  Sex: Female

DRUGS (3)
  1. AMOXICILLIN [Concomitant]
  2. ALEVE (CAPLET) [Suspect]
     Indication: FEELING ABNORMAL
     Dosage: 2 DF, PRN
     Route: 048
  3. ACETAMINOPHEN [Concomitant]

REACTIONS (9)
  - ABSCESS BACTERIAL [None]
  - INCISION SITE OEDEMA [None]
  - INCISION SITE ERYTHEMA [None]
  - INCISION SITE PAIN [None]
  - PYREXIA [None]
  - TREMOR [None]
  - SKIN ODOUR ABNORMAL [None]
  - DIZZINESS [None]
  - INCISION SITE INFECTION [None]
